FAERS Safety Report 5294448-3 (Version None)
Quarter: 2007Q2

REPORT INFORMATION
  Report Type: 
  Country: None (occurrence: None)
  Receive Date: 20070412
  Receipt Date: 20070328
  Transmission Date: 20071010
  Serious: Yes (Hospitalization)
  Sender: FDA-Public Use
  Company Number: US-AMGEN-STX199519

PATIENT
  Sex: Male

DRUGS (6)
  1. ENBREL [Suspect]
     Indication: PSORIATIC ARTHROPATHY
     Route: 058
     Dates: start: 20031025
  2. ENBREL [Suspect]
     Indication: PSORIASIS
  3. PREDNISONE TAB [Suspect]
  4. LACTULOSE [Concomitant]
  5. LACTULOSE [Concomitant]
  6. TOPROL-XL [Concomitant]

REACTIONS (3)
  - ARTHRALGIA [None]
  - HAEMATOCRIT DECREASED [None]
  - OSTEONECROSIS [None]
